FAERS Safety Report 8168995-0 (Version None)
Quarter: 2012Q1

REPORT INFORMATION
  Report Type: 
  Country: None (occurrence: None)
  Receive Date: 20120227
  Receipt Date: 20120222
  Transmission Date: 20120608
  Serious: Yes (Death, Congenital Anomaly)
  Sender: FDA-Public Use
  Company Number: PHHY2012US016080

PATIENT

DRUGS (4)
  1. LAMOTRIGINE [Suspect]
     Dosage: 400 MG, UNK
  2. PHENOBARBITAL TAB [Suspect]
     Indication: EPILEPSY
     Dosage: 120 MG, UNK
     Route: 064
  3. LAMOTRIGINE [Suspect]
     Indication: EPILEPSY
     Dosage: 250 MG, UNK
     Route: 064
  4. PHENOBARBITAL TAB [Suspect]
     Dosage: 210 MG, UNK

REACTIONS (4)
  - STILLBIRTH [None]
  - CLEFT PALATE [None]
  - CLEFT LIP [None]
  - FOETAL EXPOSURE DURING PREGNANCY [None]
